FAERS Safety Report 23313386 (Version 18)
Quarter: 2024Q2

REPORT INFORMATION
  Report Type: Spontaneous
  Country: CA (occurrence: CA)
  Receive Date: 20231219
  Receipt Date: 20240509
  Transmission Date: 20240715
  Serious: Yes (Hospitalization, Other)
  Sender: FDA-Public Use
  Company Number: CA-PFIZER INC-PV202300143850

PATIENT
  Age: 32 Year
  Sex: Female
  Weight: 101 kg

DRUGS (26)
  1. ZIRABEV [Suspect]
     Active Substance: BEVACIZUMAB-BVZR
     Indication: Glioblastoma
     Dosage: 1010 MG, EVERY 3 WEEKS
     Route: 042
     Dates: start: 20230828
  2. ZIRABEV [Suspect]
     Active Substance: BEVACIZUMAB-BVZR
     Dosage: 1010 MG
     Route: 042
     Dates: start: 20230915
  3. ZIRABEV [Suspect]
     Active Substance: BEVACIZUMAB-BVZR
     Dosage: 1010 MG
     Route: 042
     Dates: start: 20230915
  4. ZIRABEV [Suspect]
     Active Substance: BEVACIZUMAB-BVZR
     Dosage: 1010 MG
     Route: 042
     Dates: start: 20231006
  5. ZIRABEV [Suspect]
     Active Substance: BEVACIZUMAB-BVZR
     Dosage: 1010 MG
     Route: 042
     Dates: start: 20231006
  6. ZIRABEV [Suspect]
     Active Substance: BEVACIZUMAB-BVZR
     Dosage: 1010 MG
     Route: 042
     Dates: start: 20231027
  7. ZIRABEV [Suspect]
     Active Substance: BEVACIZUMAB-BVZR
     Dosage: 1010 MG
     Route: 042
     Dates: start: 20231027
  8. ZIRABEV [Suspect]
     Active Substance: BEVACIZUMAB-BVZR
     Dosage: 1010 MG
     Route: 042
     Dates: start: 20231117
  9. ZIRABEV [Suspect]
     Active Substance: BEVACIZUMAB-BVZR
     Dosage: 1010 MG
     Route: 042
     Dates: start: 20231117
  10. ZIRABEV [Suspect]
     Active Substance: BEVACIZUMAB-BVZR
     Dosage: 1010 MG
     Route: 042
     Dates: start: 20231208
  11. ZIRABEV [Suspect]
     Active Substance: BEVACIZUMAB-BVZR
     Dosage: 1010 MG
     Route: 042
     Dates: start: 20231208
  12. ZIRABEV [Suspect]
     Active Substance: BEVACIZUMAB-BVZR
     Dosage: 990 MG, EVERY 3 WEEKS
     Route: 042
     Dates: start: 2023
  13. ZIRABEV [Suspect]
     Active Substance: BEVACIZUMAB-BVZR
     Dosage: 970 MG, EVERY 3 WEEKS
     Route: 042
     Dates: start: 20231215
  14. ZIRABEV [Suspect]
     Active Substance: BEVACIZUMAB-BVZR
     Dosage: 970 MG
     Route: 042
     Dates: start: 20240115
  15. ZIRABEV [Suspect]
     Active Substance: BEVACIZUMAB-BVZR
     Dosage: 970 MG
     Route: 042
     Dates: start: 20240115
  16. ZIRABEV [Suspect]
     Active Substance: BEVACIZUMAB-BVZR
     Dosage: 970 MG
     Route: 042
     Dates: start: 20240206
  17. ZIRABEV [Suspect]
     Active Substance: BEVACIZUMAB-BVZR
     Dosage: 970 MG, EVERY 3 WEEKS
     Route: 042
     Dates: start: 20240206
  18. ZIRABEV [Suspect]
     Active Substance: BEVACIZUMAB-BVZR
     Dosage: 970 MG
     Route: 042
     Dates: start: 20240306
  19. ZIRABEV [Suspect]
     Active Substance: BEVACIZUMAB-BVZR
     Dosage: 970 MG
     Route: 042
     Dates: start: 20240306
  20. ZIRABEV [Suspect]
     Active Substance: BEVACIZUMAB-BVZR
     Dosage: 880 MG, EVERY 3 WEEKS
     Route: 042
  21. ZIRABEV [Suspect]
     Active Substance: BEVACIZUMAB-BVZR
     Dosage: 880 MG
     Route: 042
     Dates: start: 20240327
  22. ZIRABEV [Suspect]
     Active Substance: BEVACIZUMAB-BVZR
     Dosage: 880 MG
     Route: 042
     Dates: start: 20240327
  23. ZIRABEV [Suspect]
     Active Substance: BEVACIZUMAB-BVZR
     Dosage: 890 MG, EVERY 3 WEEKS
     Dates: start: 20240327
  24. ZIRABEV [Suspect]
     Active Substance: BEVACIZUMAB-BVZR
     Dosage: 890 MG
     Route: 042
     Dates: start: 20240417
  25. ZIRABEV [Suspect]
     Active Substance: BEVACIZUMAB-BVZR
     Dosage: 890 MG
     Route: 042
     Dates: start: 20240417
  26. ZIRABEV [Suspect]
     Active Substance: BEVACIZUMAB-BVZR
     Dosage: 820 MG, EVERY 3 WEEKS
     Route: 042

REACTIONS (16)
  - Infection [Unknown]
  - Seizure [Not Recovered/Not Resolved]
  - Weight decreased [Not Recovered/Not Resolved]
  - Poor venous access [Unknown]
  - Contusion [Unknown]
  - Blood pressure diastolic increased [Recovered/Resolved]
  - General physical health deterioration [Not Recovered/Not Resolved]
  - Psychogenic seizure [Unknown]
  - Lethargy [Recovering/Resolving]
  - Nausea [Not Recovered/Not Resolved]
  - Tachycardia [Unknown]
  - Dehydration [Unknown]
  - Asthenia [Not Recovered/Not Resolved]
  - Fatigue [Not Recovered/Not Resolved]
  - Pain [Not Recovered/Not Resolved]
  - Off label use [Unknown]

NARRATIVE: CASE EVENT DATE: 20230101
